FAERS Safety Report 12597234 (Version 4)
Quarter: 2017Q1

REPORT INFORMATION
  Report Type: Spontaneous
  Country: US (occurrence: US)
  Receive Date: 20160727
  Receipt Date: 20170104
  Transmission Date: 20170428
  Serious: Yes (Hospitalization, Other)
  Sender: FDA-Public Use
  Company Number: US-AMGEN-USASP2016095989

PATIENT
  Age: 62 Year
  Sex: Female

DRUGS (2)
  1. NEULASTA [Suspect]
     Active Substance: PEGFILGRASTIM
     Indication: PRODUCT USED FOR UNKNOWN INDICATION
     Dosage: UNK
     Route: 065
     Dates: start: 20160708, end: 2016
  2. NEULASTA [Suspect]
     Active Substance: PEGFILGRASTIM
     Dosage: 3 MG, UNK
     Route: 065
     Dates: start: 2016

REACTIONS (22)
  - Paralysis [Unknown]
  - Musculoskeletal pain [Unknown]
  - Rash [Unknown]
  - Back pain [Unknown]
  - Adverse reaction [Unknown]
  - Dehydration [Unknown]
  - Feeling abnormal [Unknown]
  - Dyspnoea [Unknown]
  - Hypoaesthesia [Unknown]
  - Abdominal distension [Not Recovered/Not Resolved]
  - Chest pain [Recovered/Resolved]
  - Syncope [Unknown]
  - Spinal pain [Unknown]
  - Ascites [Unknown]
  - Headache [Unknown]
  - Head injury [Unknown]
  - Joint swelling [Not Recovered/Not Resolved]
  - Laceration [Unknown]
  - Groin pain [Unknown]
  - Transient ischaemic attack [Unknown]
  - Dizziness [Not Recovered/Not Resolved]
  - Fall [Recovered/Resolved]

NARRATIVE: CASE EVENT DATE: 2016
